FAERS Safety Report 9350593 (Version 4)
Quarter: 2013Q3

REPORT INFORMATION
  Report Type: Spontaneous
  Country: AR (occurrence: AR)
  Receive Date: 20130617
  Receipt Date: 20130718
  Transmission Date: 20140515
  Serious: Yes (Other)
  Sender: FDA-Public Use
  Company Number: AR-JNJFOC-20130607194

PATIENT
  Age: 69 Year
  Sex: Male

DRUGS (3)
  1. XARELTO [Suspect]
     Indication: ATRIAL FIBRILLATION
     Route: 048
     Dates: start: 201208, end: 201301
  2. XARELTO [Suspect]
     Indication: CEREBROVASCULAR ACCIDENT PROPHYLAXIS
     Route: 048
     Dates: start: 201208, end: 201301
  3. ACENOCOUMAROL [Concomitant]
     Route: 065
     Dates: start: 201304

REACTIONS (3)
  - Gastrointestinal haemorrhage [Recovered/Resolved]
  - Erosive oesophagitis [Unknown]
  - Red blood cell count decreased [Unknown]
